FAERS Safety Report 9889048 (Version 1)
Quarter: 2014Q1

REPORT INFORMATION
  Report Type: Spontaneous
  Country: US (occurrence: None)
  Receive Date: 20140207
  Receipt Date: 20140207
  Transmission Date: 20141002
  Serious: Yes (Hospitalization)
  Sender: FDA-Public Use
  Company Number: UCM201401-000009

PATIENT
  Age: 4 Year
  Sex: 0

DRUGS (4)
  1. DIVALPROEX SODIUM [Suspect]
     Indication: CONVULSION
  2. LACOSAMIDE [Suspect]
     Dosage: 25 MG, BID (3.8 MG/KG/DAY)
  3. TOPIRAMATE [Concomitant]
  4. OXCARBAZEPINE [Concomitant]

REACTIONS (16)
  - Toxicity to various agents [None]
  - Convulsion [None]
  - Pyrexia [None]
  - Dizziness [None]
  - Convulsion [None]
  - Balance disorder [None]
  - Decreased appetite [None]
  - Gait disturbance [None]
  - Leukopenia [None]
  - Thrombocytopenia [None]
  - Hypertonia [None]
  - Extensor plantar response [None]
  - Clonus [None]
  - Hyperammonaemic encephalopathy [None]
  - Bone marrow failure [None]
  - Reticulocyte percentage decreased [None]
